FAERS Safety Report 5342041-6 (Version None)
Quarter: 2007Q2

REPORT INFORMATION
  Report Type: 
  Country: None (occurrence: None)
  Receive Date: 20070530
  Receipt Date: 20070530
  Transmission Date: 20071010
  Serious: Yes (Life-Threatening, Hospitalization, Other)
  Sender: FDA-Public Use
  Company Number: None

PATIENT
  Sex: Male
  Weight: 102 kg

DRUGS (5)
  1. CETUXIMAB 900MG LOT05C00422B/05C004281A [Suspect]
     Indication: COLON CANCER
     Dosage: 900MG ONE DOSE 3/7/07 IV
     Route: 042
     Dates: start: 20070307, end: 20070307
  2. CETUXIMAB 565MG LOT05C004281A/0500429A [Suspect]
     Indication: COLON CANCER
     Dosage: 565 MG 3/14 AND 3/21/07 IV
     Route: 042
     Dates: start: 20070314, end: 20070321
  3. OXALIPLATIN [Concomitant]
  4. FLUOROURACIL [Concomitant]
  5. LEUCOVORIN CALCIUM [Concomitant]

REACTIONS (2)
  - CORONARY ARTERY STENOSIS [None]
  - MYOCARDIAL INFARCTION [None]
